FAERS Safety Report 5610144-4 (Version None)
Quarter: 2008Q1

REPORT INFORMATION
  Report Type: 
  Country: None (occurrence: None)
  Receive Date: 20080131
  Receipt Date: 20080116
  Transmission Date: 20080703
  Serious: Yes (Hospitalization)
  Sender: FDA-Public Use
  Company Number: US-BAYER-200811299GPV

PATIENT
  Age: 63 Year
  Sex: Male
  Weight: 78 kg

DRUGS (5)
  1. MABCAMPATH [Suspect]
     Indication: CHRONIC LYMPHOCYTIC LEUKAEMIA
     Route: 058
     Dates: start: 20071126, end: 20080109
  2. SUMETROLIM [Concomitant]
     Route: 048
     Dates: start: 20071126
  3. ACYCLOVIR [Concomitant]
     Route: 042
     Dates: start: 20080110
  4. ACYCLOVIR [Concomitant]
     Route: 048
     Dates: start: 20071126, end: 20080111
  5. MILURIT [Concomitant]

REACTIONS (5)
  - ATRIAL FIBRILLATION [None]
  - BRONCHOPNEUMONIA [None]
  - ENCEPHALITIS [None]
  - FRACTURED COCCYX [None]
  - URINARY RETENTION [None]
